FAERS Safety Report 14984224 (Version 1)
Quarter: 2018Q2

REPORT INFORMATION
  Report Type: Spontaneous
  Country: US (occurrence: US)
  Receive Date: 20180607
  Receipt Date: 20180607
  Transmission Date: 20180711
  Serious: Yes (Other)
  Sender: FDA-Public Use
  Company Number: US-JAZZ-2017-US-016358

PATIENT
  Age: 69 Year
  Sex: Female

DRUGS (2)
  1. NOREPINEPHRINE                     /00127502/ [Concomitant]
     Active Substance: NOREPINEPHRINE BITARTRATE
     Indication: PRODUCT USED FOR UNKNOWN INDICATION
  2. DEFITELIO [Suspect]
     Active Substance: DEFIBROTIDE SODIUM
     Indication: VENOOCCLUSIVE DISEASE
     Dosage: UNK
     Dates: start: 20171205, end: 201712

REACTIONS (2)
  - Flushing [Unknown]
  - Hypotension [Unknown]

NARRATIVE: CASE EVENT DATE: 20171205
